FAERS Safety Report 10264490 (Version 2)
Quarter: 2016Q2

REPORT INFORMATION
  Report Type: Report from Study
  Country: US (occurrence: US)
  Receive Date: 20140627
  Receipt Date: 20160530
  Transmission Date: 20160815
  Serious: Yes (Other)
  Sender: FDA-Public Use
  Company Number: US-ROCHE-1424951

PATIENT
  Sex: Female
  Weight: 180 kg

DRUGS (11)
  1. CALAMINE LOTION [Concomitant]
     Active Substance: CALAMINE LOTION
     Indication: DERMATITIS
     Route: 061
     Dates: start: 201306
  2. LEVOTHYROXINE. [Concomitant]
     Active Substance: LEVOTHYROXINE
     Indication: THYROID DISORDER
     Route: 048
  3. RITUXAN [Suspect]
     Active Substance: RITUXIMAB
     Indication: MYASTHENIA GRAVIS
     Route: 042
     Dates: start: 2007
  4. TRIAMTERENE. [Suspect]
     Active Substance: TRIAMTERENE
     Indication: BLOOD PRESSURE MEASUREMENT
     Route: 048
  5. BENADRYL [Concomitant]
     Active Substance: DIPHENHYDRAMINE HYDROCHLORIDE
     Dosage: 05/OCT/2012, 04/JAN/2013, 19/APR/2013, 19/JUL/2013
     Route: 042
  6. TYLENOL [Concomitant]
     Active Substance: ACETAMINOPHEN
     Route: 048
  7. SIMVASTATIN. [Concomitant]
     Active Substance: SIMVASTATIN
     Indication: BLOOD CHOLESTEROL
     Route: 048
  8. TAGAMET [Concomitant]
     Active Substance: CIMETIDINE
     Dosage: 19/APR/2013, 19/JUL/2013
     Route: 048
  9. RITUXAN [Suspect]
     Active Substance: RITUXIMAB
     Dosage: 18/APR/2014, 13/JUL/2012, 05/OCT/2012, 04/JAN/2013, 19/APR/2013, 19/JUL/2013
     Route: 042
  10. VITAMIN B12 [Suspect]
     Active Substance: CYANOCOBALAMIN
     Indication: PRODUCT USED FOR UNKNOWN INDICATION
     Route: 065
  11. TYLENOL [Concomitant]
     Active Substance: ACETAMINOPHEN
     Dosage: 05/OCT/2012, 04/JAN/2013, 19/APR/2013, 19/JUL/2013
     Route: 048

REACTIONS (2)
  - Arthropathy [Not Recovered/Not Resolved]
  - Dermatitis [Not Recovered/Not Resolved]

NARRATIVE: CASE EVENT DATE: 2013
